FAERS Safety Report 12378204 (Version 1)
Quarter: 2016Q2

REPORT INFORMATION
  Report Type: Spontaneous
  Country: US (occurrence: US)
  Receive Date: 20160517
  Receipt Date: 20160517
  Transmission Date: 20160815
  Serious: No
  Sender: FDA-Public Use
  Company Number: US-MALLINCKRODT-T201504996

PATIENT
  Age: 87 Year
  Sex: Female
  Weight: 65 kg

DRUGS (14)
  1. H.P. ACTHAR [Suspect]
     Active Substance: CORTICOTROPIN
     Indication: SARCOIDOSIS
     Dosage: 40 UNITS EVERY 48 HOURS
     Route: 058
     Dates: start: 20150918, end: 20151020
  2. LASIX [Concomitant]
     Active Substance: FUROSEMIDE
  3. H.P. ACTHAR [Suspect]
     Active Substance: CORTICOTROPIN
     Dosage: 40 UNITS EVERY 48 HOURS
     Route: 058
  4. ASA [Concomitant]
     Active Substance: ASPIRIN
     Dosage: 81 MG
  5. GLIPIZIDE. [Concomitant]
     Active Substance: GLIPIZIDE
  6. ZOFRAN [Concomitant]
     Active Substance: ONDANSETRON HYDROCHLORIDE
     Dosage: AS NEEDED
  7. OMEPRAZOLE. [Concomitant]
     Active Substance: OMEPRAZOLE
  8. LISINOPRIL. [Concomitant]
     Active Substance: LISINOPRIL
  9. FISH OIL [Concomitant]
     Active Substance: FISH OIL
  10. PREDNISONE. [Concomitant]
     Active Substance: PREDNISONE
     Dosage: DOSE INCREASED (UNK)
  11. METFORMIN [Concomitant]
     Active Substance: METFORMIN HYDROCHLORIDE
  12. GABAPENTIN. [Concomitant]
     Active Substance: GABAPENTIN
  13. PREDNISONE. [Concomitant]
     Active Substance: PREDNISONE
     Dosage: 10 MG
  14. PRESERVISION AREDS [Concomitant]
     Active Substance: MINERALS\VITAMINS

REACTIONS (13)
  - Asthenia [Not Recovered/Not Resolved]
  - Blister [Not Recovered/Not Resolved]
  - Disorientation [Recovering/Resolving]
  - Fall [Unknown]
  - Confusional state [Not Recovered/Not Resolved]
  - Gait disturbance [Not Recovered/Not Resolved]
  - Aggression [Recovering/Resolving]
  - Psychomotor hyperactivity [Recovering/Resolving]
  - Restlessness [Recovering/Resolving]
  - Drug withdrawal syndrome [Recovering/Resolving]
  - Decreased appetite [Recovering/Resolving]
  - Drug dose omission [Not Recovered/Not Resolved]
  - Agitation [Recovering/Resolving]

NARRATIVE: CASE EVENT DATE: 20150918
